FAERS Safety Report 6252214-6 (Version None)
Quarter: 2009Q2

REPORT INFORMATION
  Report Type: 
  Country: None (occurrence: None)
  Receive Date: 20090629
  Receipt Date: 20090617
  Transmission Date: 20091009
  Serious: Yes (Other)
  Sender: FDA-Public Use
  Company Number: JP-1169957

PATIENT
  Age: 66 Year
  Sex: Male

DRUGS (2)
  1. AZOPT [Suspect]
     Indication: GLAUCOMA
     Dosage: OPHTHALMIC
     Route: 047
     Dates: start: 20080222
  2. FLUOROMETHOLONE (FLUOROMETHOLONE) [Concomitant]

REACTIONS (1)
  - CORNEAL DISORDER [None]
